FAERS Safety Report 18204683 (Version 4)
Quarter: 2022Q3

REPORT INFORMATION
  Report Type: Spontaneous
  Country: NL (occurrence: NL)
  Receive Date: 20200827
  Receipt Date: 20220713
  Transmission Date: 20221026
  Serious: Yes (Other)
  Sender: FDA-Public Use
  Company Number: NL-GSKCCFEMEA-CASE-01013910_AE-32986

PATIENT

DRUGS (1)
  1. TRELEGY ELLIPTA [Suspect]
     Active Substance: FLUTICASONE FUROATE\UMECLIDINIUM BROMIDE\VILANTEROL TRIFENATATE
     Indication: Product used for unknown indication
     Dosage: UNK
     Dates: start: 201903, end: 201912

REACTIONS (4)
  - Tooth injury [Not Recovered/Not Resolved]
  - Teeth brittle [Unknown]
  - Tooth fracture [Unknown]
  - Oral discomfort [Unknown]
